FAERS Safety Report 4323652-3 (Version None)
Quarter: 2004Q1

REPORT INFORMATION
  Report Type: 
  Country: None (occurrence: None)
  Receive Date: 20040323
  Receipt Date: 20040309
  Transmission Date: 20041129
  Serious: No
  Sender: FDA-Public Use
  Company Number: 2004S1000036

PATIENT
  Age: 35 Year
  Sex: Male
  Weight: 91 kg

DRUGS (4)
  1. CUBICIN [Suspect]
     Indication: PYODERMA
     Dosage: 364 MG;QD;IV
     Route: 042
     Dates: start: 20040221, end: 20040308
  2. CUBICIN [Suspect]
     Indication: STAPHYLOCOCCAL INFECTION
     Dosage: 364 MG;QD;IV
     Route: 042
     Dates: start: 20040221, end: 20040308
  3. VANCOMYCIN [Concomitant]
  4. ACIPHEX [Concomitant]

REACTIONS (6)
  - BACK PAIN [None]
  - CHEST DISCOMFORT [None]
  - CHEST PAIN [None]
  - CIRCULATORY COLLAPSE [None]
  - MYOCARDIAL INFARCTION [None]
  - PARAESTHESIA [None]
